FAERS Safety Report 10105221 (Version 2)
Quarter: 2014Q3

REPORT INFORMATION
  Report Type: Other
  Country: US (occurrence: US)
  Receive Date: 20140424
  Receipt Date: 20140813
  Transmission Date: 20150326
  Serious: Yes (Hospitalization, Other)
  Sender: FDA-Public Use
  Company Number: US-GSKPPD-2014GSK001164

PATIENT
  Age: 60 Year
  Sex: Female

DRUGS (3)
  1. ALTACE [Concomitant]
     Active Substance: RAMIPRIL
  2. DELCORT [Concomitant]
  3. AVANDIA [Suspect]
     Active Substance: ROSIGLITAZONE MALEATE
     Indication: DIABETES MELLITUS
     Dosage: AVANDIA WAS NOT LISTED AMONG THE PATIENT^S ADMISSION/DISCHARGE RECORDS.
     Route: 048

REACTIONS (3)
  - Arteriosclerosis coronary artery [Recovered/Resolved]
  - Myocardial infarction [None]
  - Angina unstable [Recovered/Resolved]

NARRATIVE: CASE EVENT DATE: 20060222
